FAERS Safety Report 12140710 (Version 1)
Quarter: 2016Q1

REPORT INFORMATION
  Report Type: Spontaneous
  Country: US (occurrence: None)
  Receive Date: 20160302
  Receipt Date: 20160302
  Transmission Date: 20160526
  Serious: Yes (Life-Threatening, Hospitalization)
  Sender: FDA-Public Use
  Company Number: None

PATIENT
  Age: 76 Year
  Sex: Male
  Weight: 62.5 kg

DRUGS (1)
  1. FONDAPARINUX [Suspect]
     Active Substance: FONDAPARINUX
     Indication: DEEP VEIN THROMBOSIS
     Route: 058
     Dates: start: 20151220, end: 20160204

REACTIONS (4)
  - Syncope [None]
  - Anaemia [None]
  - Haemorrhage [None]
  - Hypotension [None]

NARRATIVE: CASE EVENT DATE: 20160204
